FAERS Safety Report 8540638-3 (Version None)
Quarter: 2012Q3

REPORT INFORMATION
  Report Type: 
  Country: None (occurrence: None)
  Receive Date: 20120726
  Receipt Date: 20120720
  Transmission Date: 20120928
  Serious: Yes (Hospitalization, Other)
  Sender: FDA-Public Use
  Company Number: US-ALLERGAN-1208418US

PATIENT
  Age: 63 Year
  Sex: Male
  Weight: 80 kg

DRUGS (10)
  1. BOTULINUM TOXIN TYPE A [Suspect]
     Indication: HEMIPLEGIA
     Dosage: 500 UNITS, SINGLE
     Route: 030
     Dates: start: 20120531, end: 20120531
  2. BOTULINUM TOXIN TYPE A [Suspect]
     Dosage: 200 UNITS, SINGLE
     Route: 030
     Dates: start: 20120531, end: 20120531
  3. METOPROLOL SUCCINATE [Concomitant]
     Indication: PRODUCT USED FOR UNKNOWN INDICATION
     Route: 048
  4. SPIRONOLACTONE [Concomitant]
     Indication: PRODUCT USED FOR UNKNOWN INDICATION
     Route: 048
  5. SERTRALINE HYDROCHLORIDE [Concomitant]
     Indication: PRODUCT USED FOR UNKNOWN INDICATION
     Route: 048
  6. LISINOPRIL [Concomitant]
     Indication: PRODUCT USED FOR UNKNOWN INDICATION
     Route: 048
  7. NORTRIPTYLINE HCL [Concomitant]
     Indication: PRODUCT USED FOR UNKNOWN INDICATION
     Route: 048
  8. AMLODIPINE [Concomitant]
     Indication: PRODUCT USED FOR UNKNOWN INDICATION
     Route: 048
  9. MULTI-VITAMINS [Concomitant]
     Indication: PRODUCT USED FOR UNKNOWN INDICATION
     Route: 048
  10. BOTULINUM TOXIN TYPE A [Suspect]
     Indication: MUSCLE SPASTICITY
     Dosage: 200 UNITS, SINGLE
     Route: 030
     Dates: start: 20120531, end: 20120531

REACTIONS (12)
  - RHABDOMYOLYSIS [None]
  - ABDOMINAL DISCOMFORT [None]
  - NAUSEA [None]
  - MUSCULAR WEAKNESS [None]
  - LIVER FUNCTION TEST ABNORMAL [None]
  - DYSPHAGIA [None]
  - BOTULISM [None]
  - BLOOD CREATINE PHOSPHOKINASE INCREASED [None]
  - DIPLOPIA [None]
  - DIARRHOEA [None]
  - VISION BLURRED [None]
  - URINARY TRACT INFECTION [None]
